FAERS Safety Report 13523266 (Version 6)
Quarter: 2022Q3

REPORT INFORMATION
  Report Type: Spontaneous
  Country: US (occurrence: US)
  Receive Date: 20170508
  Receipt Date: 20220825
  Transmission Date: 20221027
  Serious: Yes (Hospitalization, Other)
  Sender: FDA-Public Use
  Company Number: US-VIFOR (INTERNATIONAL) INC.-VIT-2017-01422

PATIENT
  Age: 70 Year
  Sex: Female
  Weight: 59.928 kg

DRUGS (9)
  1. VELTASSA [Suspect]
     Active Substance: PATIROMER
     Indication: Hyperkalaemia
     Route: 048
     Dates: start: 20160730
  2. VELTASSA [Suspect]
     Active Substance: PATIROMER
     Dosage: 8.4 GM ON MONDAY, WEDNESDAY , FRIDAY AND SUNDAY
     Route: 048
  3. AMLODIPINE BESYLATE [Concomitant]
     Active Substance: AMLODIPINE BESYLATE
  4. COREG [Concomitant]
     Active Substance: CARVEDILOL
  5. KAYEXALATE [Concomitant]
     Active Substance: SODIUM POLYSTYRENE SULFONATE
  6. LEVOTHYROXINE SODIUM [Concomitant]
     Active Substance: LEVOTHYROXINE SODIUM
  7. CARVEDILOL [Concomitant]
     Active Substance: CARVEDILOL
  8. HYDRALAZINE HCL [Concomitant]
     Active Substance: HYDRALAZINE HYDROCHLORIDE
  9. LOSARTAN POTASSIUM [Concomitant]
     Active Substance: LOSARTAN POTASSIUM

REACTIONS (7)
  - Thrombosis [Unknown]
  - Blood pressure increased [Not Recovered/Not Resolved]
  - Flatulence [Unknown]
  - Product dose omission issue [Unknown]
  - Off label use [Unknown]
  - Blood potassium increased [Recovered/Resolved]
  - Arteriovenous fistula site complication [Recovered/Resolved]

NARRATIVE: CASE EVENT DATE: 20160730
